FAERS Safety Report 7402091-2 (Version None)
Quarter: 2011Q2

REPORT INFORMATION
  Report Type: 
  Country: None (occurrence: None)
  Receive Date: 20110408
  Receipt Date: 20110314
  Transmission Date: 20111010
  Serious: No
  Sender: FDA-Public Use
  Company Number: US-B.I. PHARMACEUTICALS,INC./RIDGEFIELD-2010-BP-15185BP

PATIENT
  Sex: Female

DRUGS (15)
  1. MULTAQ [Concomitant]
     Dosage: 800 MG
     Route: 048
  2. CLONAZEPAM [Concomitant]
     Indication: ANXIETY
     Dosage: 2 MG
     Route: 048
  3. BONIVA [Concomitant]
     Indication: OSTEOPOROSIS
     Route: 048
  4. HYDROXYZINE [Concomitant]
     Indication: ANXIETY
  5. LEXAPRO [Concomitant]
     Indication: ANXIETY
  6. VITAMIN D [Concomitant]
     Dosage: 50000 U
     Route: 048
  7. HYDROXYZINE [Concomitant]
     Indication: INSOMNIA
     Dosage: 100 MG
     Route: 048
  8. AMBIEN CR [Concomitant]
     Indication: INSOMNIA
     Dosage: 12.5 MG
     Route: 048
  9. PRADAXA [Suspect]
     Indication: ATRIAL FIBRILLATION
     Dosage: 300 MG
     Route: 048
     Dates: start: 20101210
  10. CARTIA XT [Concomitant]
     Indication: ATRIAL FIBRILLATION
     Dosage: 120 MG
     Route: 048
  11. LEXAPRO [Concomitant]
     Indication: DEPRESSION
     Dosage: 20 MG
     Route: 048
  12. PRISTIQ [Concomitant]
     Indication: ANXIETY
  13. SIMVASTATIN [Concomitant]
     Indication: BLOOD CHOLESTEROL INCREASED
     Dosage: 40 MG
     Route: 048
  14. PRISTIQ [Concomitant]
     Indication: DEPRESSION
     Dosage: 100 MG
     Route: 048
  15. AMBIEN CR [Concomitant]
     Indication: ANXIETY

REACTIONS (2)
  - CONTUSION [None]
  - GLOSSITIS [None]
